FAERS Safety Report 24776557 (Version 2)
Quarter: 2025Q1

REPORT INFORMATION
  Report Type: Spontaneous
  Country: AU (occurrence: AU)
  Receive Date: 20241226
  Receipt Date: 20250318
  Transmission Date: 20250409
  Serious: Yes (Other)
  Sender: CSL BEHRING
  Company Number: AU-BEH-2024189006

PATIENT
  Age: 63 Year
  Sex: Female

DRUGS (1)
  1. ALBUREX [Suspect]
     Active Substance: ALBUMIN HUMAN
     Indication: Oliguria
     Route: 065

REACTIONS (6)
  - Hypotension [Recovered/Resolved]
  - Hypotension [Unknown]
  - Tachycardia [Recovered/Resolved]
  - Pruritus [Recovered/Resolved]
  - Tachycardia [Unknown]
  - Pruritus [Unknown]

NARRATIVE: CASE EVENT DATE: 20241218
